FAERS Safety Report 25619373 (Version 1)
Quarter: 2025Q3

REPORT INFORMATION
  Report Type: Spontaneous
  Country: EU (occurrence: EU)
  Receive Date: 20250729
  Receipt Date: 20250729
  Transmission Date: 20251021
  Serious: Yes (Other)
  Sender: MYLAN
  Company Number: None

PATIENT
  Age: 32 Year
  Sex: Female

DRUGS (3)
  1. ZOLPIDEM [Suspect]
     Active Substance: ZOLPIDEM TARTRATE
     Indication: Insomnia
     Dosage: 10 DOSAGE FORM, QD (10.0 TABLETS EVERY 24H NIGHT)
     Dates: start: 20250624, end: 20250708
  2. Sibilla diario [Concomitant]
     Indication: Oral contraception
     Dosage: 1 DOSAGE FORM, QD (1.0 TABLETS BREAKFAST)
     Dates: start: 20240501
  3. ESCITALOPRAM OXALATE [Concomitant]
     Active Substance: ESCITALOPRAM OXALATE
     Indication: Anxiety
     Dosage: 20 MILLIGRAM, QD (20.0 MG BREAKFAST)
     Dates: start: 20250514

REACTIONS (2)
  - Parkinson^s disease [Recovered/Resolved]
  - Headache [Recovered/Resolved]

NARRATIVE: CASE EVENT DATE: 20250624
